FAERS Safety Report 7145763-X (Version None)
Quarter: 2010Q4

REPORT INFORMATION
  Report Type: 
  Country: None (occurrence: None)
  Receive Date: 20101208
  Receipt Date: 20101124
  Transmission Date: 20110411
  Serious: Yes (Death, Hospitalization, Congenital Anomaly)
  Sender: FDA-Public Use
  Company Number: A0752264A

PATIENT
  Sex: Male
  Weight: 1.8 kg

DRUGS (11)
  1. PAXIL [Suspect]
     Indication: DEPRESSION
     Dosage: 20MG AT NIGHT
     Dates: start: 19970101, end: 20030101
  2. PAROXETINE HYDROCHLORIDE [Suspect]
     Indication: DEPRESSION
     Dosage: 20MG AT NIGHT
     Dates: start: 20030101, end: 20040101
  3. VICODIN [Concomitant]
  4. TOPAMAX [Concomitant]
     Dosage: 100MG PER DAY
  5. BEXTRA [Concomitant]
     Dosage: 20MG AS REQUIRED
  6. BACLOFEN [Concomitant]
     Dosage: 10MG THREE TIMES PER DAY
  7. LIDODERM [Concomitant]
  8. BUSPAR [Concomitant]
  9. ZOFRAN [Concomitant]
  10. ZYDONE [Concomitant]
  11. PRENATAL VITAMINS [Concomitant]

REACTIONS (11)
  - AORTIC STENOSIS [None]
  - ATRIAL SEPTAL DEFECT [None]
  - CARDIAC ARREST [None]
  - CONVULSION [None]
  - DRUG EXPOSURE DURING PREGNANCY [None]
  - GASTROINTESTINAL NECROSIS [None]
  - HYPOPLASTIC LEFT HEART SYNDROME [None]
  - MITRAL VALVE STENOSIS [None]
  - MULTI-ORGAN FAILURE [None]
  - NECROTISING COLITIS [None]
  - SHUNT OCCLUSION [None]
